FAERS Safety Report 4848173-0 (Version None)
Quarter: 2005Q4

REPORT INFORMATION
  Report Type: 
  Country: None (occurrence: None)
  Receive Date: 20051208
  Receipt Date: 20020924
  Transmission Date: 20060501
  Serious: Yes (Death)
  Sender: FDA-Public Use
  Company Number: FR-SANOFI-SYNTHELABO-A02200201421

PATIENT
  Sex: Male
  Weight: 98 kg

DRUGS (7)
  1. STILNOX [Suspect]
     Indication: INSOMNIA
     Dosage: BETWEEN 5 MG AND 60 MG EACH NIGHT
     Route: 048
  2. STILNOX [Suspect]
     Indication: DRUG ABUSER
     Dosage: BETWEEN 5 MG AND 60 MG EACH NIGHT
     Route: 048
  3. NOCTAMIDE [Concomitant]
     Dosage: 1 MG  TO 2 MG DAILY
     Route: 048
     Dates: start: 20020402
  4. NOOTROPYL [Concomitant]
     Route: 048
  5. NEULEPTIL [Concomitant]
     Dosage: 5 MG TO 20 MG
     Route: 048
     Dates: start: 20020401
  6. DEROXAT [Concomitant]
     Route: 048
     Dates: start: 20020225
  7. LAMICTAL [Concomitant]
     Indication: EPILEPSY
     Route: 048
     Dates: start: 20010101

REACTIONS (7)
  - DEATH [None]
  - DEPRESSION [None]
  - DRUG ABUSER [None]
  - EPILEPSY [None]
  - LIVER FUNCTION TEST ABNORMAL [None]
  - LOSS OF CONSCIOUSNESS [None]
  - URINARY INCONTINENCE [None]
